FAERS Safety Report 10873362 (Version 2)
Quarter: 2015Q1

REPORT INFORMATION
  Report Type: Spontaneous
  Country: IT (occurrence: None)
  Receive Date: 20150223
  Receipt Date: 20150306
  Transmission Date: 20150721
  Serious: Yes (Hospitalization)
  Sender: FDA-Public Use
  Company Number: 2746880

PATIENT
  Age: 62 Year
  Sex: Male

DRUGS (9)
  1. (LASIX /00032601/) [Concomitant]
  2. (LANOXIN) [Concomitant]
  3. (HUMALOG) [Concomitant]
  4. (SPIRIVA) [Concomitant]
  5. (LANTUS) [Concomitant]
  6. (CEFTRIAXONE SODIUM) [Suspect]
     Active Substance: CEFTRIAXONE SODIUM
     Indication: ANTIBIOTIC PROPHYLAXIS
     Dosage: INTRAVENOUS (NOT OTHERWISE SPECIFIED)
     Route: 042
     Dates: start: 20150204, end: 20150204
  7. (COUMADIN /00014802/) [Concomitant]
  8. (NORVASC) [Concomitant]
  9. (ANTRA /00661201/) [Concomitant]

REACTIONS (3)
  - Hypotension [None]
  - Shock [None]
  - Acute respiratory failure [None]

NARRATIVE: CASE EVENT DATE: 20150204
